FAERS Safety Report 12503660 (Version 1)
Quarter: 2016Q2

REPORT INFORMATION
  Report Type: Spontaneous
  Country: US (occurrence: None)
  Receive Date: 20160627
  Receipt Date: 20160627
  Transmission Date: 20160815
  Serious: Yes (Hospitalization)
  Sender: FDA-Public Use
  Company Number: None

PATIENT
  Age: 68 Year
  Sex: Male
  Weight: 80 kg

DRUGS (10)
  1. DOXYCYCLINE, 100 MG [Suspect]
     Active Substance: DOXYCYCLINE
     Indication: BRONCHITIS
     Route: 048
  2. SPIRONOLACTONE (ALDACTONE) [Concomitant]
  3. COMBIVENT [Concomitant]
     Active Substance: ALBUTEROL SULFATE\IPRATROPIUM BROMIDE
  4. VITAMIN - THERAPEUTIC MULTIVITAMINS W/MINERALS (CENTRUM SILVER, THERA-M) [Concomitant]
  5. CARVEDILOL. [Concomitant]
     Active Substance: CARVEDILOL
  6. DELTASONE [Concomitant]
     Active Substance: PREDNISONE
  7. WARFARIN 2.5 MG [Suspect]
     Active Substance: WARFARIN
     Indication: ESSENTIAL THROMBOCYTHAEMIA
     Route: 048
  8. ALBUTEROL. [Concomitant]
     Active Substance: ALBUTEROL
  9. HYDROXYUREA (HYDREA) [Concomitant]
  10. OMEGA 3 [Concomitant]
     Active Substance: OMEGA-3 FATTY ACIDS

REACTIONS (6)
  - Groin pain [None]
  - International normalised ratio increased [None]
  - Back pain [None]
  - Gait disturbance [None]
  - Insomnia [None]
  - Haematoma [None]

NARRATIVE: CASE EVENT DATE: 20160402
